FAERS Safety Report 4386575-X (Version None)
Quarter: 2004Q2

REPORT INFORMATION
  Report Type: 
  Country: None (occurrence: None)
  Receive Date: 20040623
  Receipt Date: 20040610
  Transmission Date: 20050107
  Serious: Yes (Hospitalization, Other)
  Sender: FDA-Public Use
  Company Number: 2004031557

PATIENT
  Age: 54 Year
  Sex: Male
  Weight: 59 kg

DRUGS (4)
  1. LIPITOR [Suspect]
     Indication: HYPERCHOLESTEROLAEMIA
     Dosage: 10 MG (10 MG, 1 IN 1 D), ORAL
     Route: 048
     Dates: start: 20030130, end: 20040506
  2. VALSARTAN (VALSARTAN) [Suspect]
     Indication: HYPERTENSION
     Dosage: 80 MG (80 MG, 1 IN 1 D), ORAL
     Route: 048
     Dates: start: 20020924
  3. BENZYLHYDROCHLORITHIZIDE (BENZYLHYDROCHLOROTHIAZIDE) [Suspect]
     Indication: HYPERTENSION
     Dosage: 1 IN 1 D, ORAL
     Route: 048
     Dates: start: 20030802, end: 20040506
  4. POTASSIUM CHLORIDE (POTASSIUKM CHLORIDE) [Suspect]
     Indication: PROPHYLAXIS
     Dosage: 1 IN 1 D, ORAL
     Route: 048
     Dates: start: 20030802, end: 20040506

REACTIONS (3)
  - BLOOD PRESSURE INCREASED [None]
  - NEPHROLITHIASIS [None]
  - RENAL FAILURE CHRONIC [None]
